FAERS Safety Report 11540451 (Version 1)
Quarter: 2015Q3

REPORT INFORMATION
  Report Type: Spontaneous
  Country: US (occurrence: US)
  Receive Date: 20150923
  Receipt Date: 20150923
  Transmission Date: 20151125
  Serious: No
  Sender: FDA-Public Use
  Company Number: US-BEH-2014046720

PATIENT
  Sex: Female
  Weight: 59 kg

DRUGS (13)
  1. PRIVIGEN [Suspect]
     Active Substance: HUMAN IMMUNOGLOBULIN G
     Indication: IMMUNODEFICIENCY COMMON VARIABLE
     Route: 042
  2. ALL OTHER THERAPEUTIC PRODUCTS [Concomitant]
     Active Substance: UNSPECIFIED INGREDIENT
  3. LEVAQUIN 500 MG TABLET [Concomitant]
  4. AMBIEN 10MG TABLET [Concomitant]
  5. CIPRO 250 MG TABLET [Concomitant]
  6. ADVAIR HFA 115-21 MCG INHALER [Concomitant]
  7. PYRIDIUM 200 MG TABLET [Concomitant]
  8. TRICOR TAB160 MG [Concomitant]
  9. CALCIUM +D TAB 600 MG [Concomitant]
  10. SYNTHROID 25 MCG TABLET [Concomitant]
  11. MACROBID 100 MG CAPSULE [Concomitant]
  12. ESTRACE 1 MG TABLET [Concomitant]
  13. DIFLUCAN 100 MG TABLET [Concomitant]

REACTIONS (1)
  - Urinary tract infection [Unknown]
